FAERS Safety Report 9030591 (Version 2)
Quarter: 2013Q2

REPORT INFORMATION
  Report Type: Spontaneous
  Country: US (occurrence: US)
  Receive Date: 20130123
  Receipt Date: 20130501
  Transmission Date: 20140414
  Serious: Yes (Hospitalization)
  Sender: FDA-Public Use
  Company Number: US-BAYER-2013-007311

PATIENT
  Age: 14 Year
  Sex: Female
  Weight: 68.93 kg

DRUGS (2)
  1. YAZ [Suspect]
     Indication: PREMENSTRUAL SYNDROME
     Dosage: UNK
     Dates: start: 201205, end: 20120710
  2. YAZ [Suspect]
     Indication: PREMENSTRUAL DYSPHORIC DISORDER

REACTIONS (11)
  - Deep vein thrombosis [None]
  - Thrombosis [None]
  - Injury [None]
  - Pain [None]
  - Emotional distress [None]
  - Anxiety [None]
  - Psychological trauma [None]
  - Anhedonia [None]
  - Off label use [None]
  - Mental disorder [None]
  - Off label use [None]
